FAERS Safety Report 12232365 (Version 1)
Quarter: 2016Q2

REPORT INFORMATION
  Report Type: Report from Study
  Country: US (occurrence: US)
  Receive Date: 20160401
  Receipt Date: 20160401
  Transmission Date: 20160815
  Serious: Yes (Hospitalization)
  Sender: FDA-Public Use
  Company Number: US-ACTELION-A-US2016-133642

PATIENT
  Age: 77 Year
  Sex: Female

DRUGS (4)
  1. NORVASC [Concomitant]
     Active Substance: AMLODIPINE BESYLATE
  2. XARELTO [Suspect]
     Active Substance: RIVAROXABAN
     Indication: PRODUCT USED FOR UNKNOWN INDICATION
     Route: 065
  3. SELEXIPAG [Suspect]
     Active Substance: SELEXIPAG
     Indication: PULMONARY ARTERIAL HYPERTENSION
     Dosage: 200 MCG, BID
     Route: 048
  4. ADCIRCA [Concomitant]
     Active Substance: TADALAFIL

REACTIONS (2)
  - Haemoglobin decreased [Recovering/Resolving]
  - Transfusion [Recovering/Resolving]
